FAERS Safety Report 13445700 (Version 1)
Quarter: 2017Q2

REPORT INFORMATION
  Report Type: Spontaneous
  Country: US (occurrence: US)
  Receive Date: 20170416
  Receipt Date: 20170416
  Transmission Date: 20170830
  Serious: Yes (Other)
  Sender: FDA-Public Use
  Company Number: US-GLAXOSMITHKLINE-US2017054212

PATIENT
  Age: 65 Year
  Sex: Female

DRUGS (2)
  1. EXCEDRIN MILD HEADACHE CAPLETS [Suspect]
     Active Substance: ACETAMINOPHEN\CAFFEINE
     Indication: HEADACHE
  2. EXCEDRIN EXTRA STRENGTH [Suspect]
     Active Substance: ACETAMINOPHEN\ASPIRIN\CAFFEINE
     Indication: HEADACHE

REACTIONS (3)
  - Expired product administered [Recovered/Resolved]
  - Dependence [Unknown]
  - Intentional product misuse [Recovered/Resolved]
